FAERS Safety Report 9204088 (Version 1)
Quarter: 2013Q2

REPORT INFORMATION
  Report Type: Spontaneous
  Country: NO (occurrence: NO)
  Receive Date: 20130402
  Receipt Date: 20130402
  Transmission Date: 20140414
  Serious: Yes (Other)
  Sender: FDA-Public Use
  Company Number: NO-AMGEN-NORSP2013022836

PATIENT
  Age: 56 Year
  Sex: Female

DRUGS (4)
  1. ENBREL [Suspect]
     Indication: PSORIATIC ARTHROPATHY
     Dosage: 50 MG, WEEKLY
     Dates: start: 20120301, end: 20120312
  2. CIMZIA [Suspect]
     Indication: PSORIATIC ARTHROPATHY
     Dosage: 200 MG, 2X/WEEK
     Dates: start: 201204, end: 20121030
  3. SERETIDE [Concomitant]
     Dosage: 2X/DAY
  4. FOSAMAX [Concomitant]
     Dosage: 70 MG, WEEKLY

REACTIONS (4)
  - IIIrd nerve paresis [Unknown]
  - Eyelid ptosis [Not Recovered/Not Resolved]
  - Vision blurred [Not Recovered/Not Resolved]
  - Optic neuritis [Unknown]
